FAERS Safety Report 4528292-9 (Version None)
Quarter: 2004Q4

REPORT INFORMATION
  Report Type: 
  Country: None (occurrence: None)
  Receive Date: 20041130
  Receipt Date: 20040804
  Transmission Date: 20050328
  Serious: No
  Sender: FDA-Public Use
  Company Number: WAES 0408USA00452

PATIENT
  Age: 66 Year
  Sex: Male
  Weight: 98.8842 kg

DRUGS (6)
  1. ZETIA [Suspect]
     Indication: BLOOD CHOLESTEROL INCREASED
     Dosage: 10 MG DAILY PO
     Route: 048
     Dates: start: 20040331, end: 20040528
  2. ZOCOR [Suspect]
     Dosage: 80 MG DAILY PO
     Route: 048
     Dates: end: 20040528
  3. LOTREL [Concomitant]
  4. NASONEX [Concomitant]
  5. VIOXX [Concomitant]
  6. ASPIRIN [Concomitant]

REACTIONS (6)
  - ASPARTATE AMINOTRANSFERASE INCREASED [None]
  - BLOOD CREATINE PHOSPHOKINASE INCREASED [None]
  - DIARRHOEA [None]
  - MYOSITIS [None]
  - OEDEMA [None]
  - PULMONARY CONGESTION [None]
